FAERS Safety Report 4327157-5 (Version None)
Quarter: 2004Q1

REPORT INFORMATION
  Report Type: 
  Country: None (occurrence: None)
  Receive Date: 20040330
  Receipt Date: 20040317
  Transmission Date: 20041129
  Serious: Yes (Hospitalization)
  Sender: FDA-Public Use
  Company Number: GB-GLAXOSMITHKLINE-B0327122A

PATIENT
  Age: 33 Year
  Sex: Female
  Weight: 178.2 kg

DRUGS (6)
  1. AUGMENTIN [Suspect]
     Dosage: 357MG UNKNOWN
     Route: 048
     Dates: start: 20040229, end: 20040302
  2. SODIUM VALPROATE [Concomitant]
     Indication: EPILEPSY
     Dosage: 1G TWICE PER DAY
     Route: 048
  3. BENZYLPENICILLIN [Concomitant]
     Dosage: 2.4G FOUR TIMES PER DAY
     Route: 042
     Dates: start: 20040302
  4. FLUCLOXACILLIN [Concomitant]
     Dosage: 500MG FOUR TIMES PER DAY
     Route: 048
     Dates: start: 20040229
  5. METRONIDAZOLE [Concomitant]
     Dosage: 400MG THREE TIMES PER DAY
     Route: 048
     Dates: start: 20040229
  6. METOCLOPRAMIDE [Concomitant]
     Indication: NAUSEA
     Dosage: 10MG THREE TIMES PER DAY
     Route: 048
     Dates: start: 20040229

REACTIONS (2)
  - ERYTHEMA MARGINATUM [None]
  - SWELLING FACE [None]
